FAERS Safety Report 8894682 (Version 2)
Quarter: 2012Q4

REPORT INFORMATION
  Report Type: 
  Country: US (occurrence: US)
  Receive Date: 20121108
  Receipt Date: 20121115
  Transmission Date: 20130627
  Serious: Yes (Other)
  Sender: FDA-Public Use
  Company Number: US-ASTRAZENECA-2012SE83669

PATIENT
  Age: 70 Year
  Sex: Male
  Weight: 93 kg

DRUGS (7)
  1. CRESTOR [Suspect]
     Indication: BLOOD CHOLESTEROL ABNORMAL
     Route: 048
     Dates: start: 2009
  2. METOPROLOL [Suspect]
     Indication: ARRHYTHMIA
     Route: 048
  3. DIGOXIN [Concomitant]
     Indication: ARRHYTHMIA
     Route: 048
  4. FUROSEMIDE [Concomitant]
     Indication: ARRHYTHMIA
     Route: 048
  5. DIOVAN [Concomitant]
     Indication: ARRHYTHMIA
     Route: 048
  6. WARFARIN [Concomitant]
     Indication: ANTICOAGULANT THERAPY
     Route: 048
  7. LIPITOR [Concomitant]

REACTIONS (6)
  - Blood alkaline phosphatase increased [Unknown]
  - Liver function test abnormal [Not Recovered/Not Resolved]
  - Jaundice [Not Recovered/Not Resolved]
  - Aspartate aminotransferase increased [Unknown]
  - Blood bilirubin increased [Unknown]
  - Alanine aminotransferase increased [Unknown]
